FAERS Safety Report 5026109-X (Version None)
Quarter: 2006Q2

REPORT INFORMATION
  Report Type: 
  Country: None (occurrence: None)
  Receive Date: 20060612
  Receipt Date: 20060612
  Transmission Date: 20061013
  Serious: No
  Sender: FDA-Public Use
  Company Number: None

PATIENT
  Age: 41 Year
  Sex: Male
  Weight: 72.1219 kg

DRUGS (1)
  1. ZYVOX [Suspect]
     Indication: CELLULITIS
     Dosage: 600 MG IV Q12
     Route: 042
     Dates: start: 20060528, end: 20060608

REACTIONS (4)
  - LETHARGY [None]
  - NAUSEA [None]
  - RASH [None]
  - VOMITING [None]
